FAERS Safety Report 9504780 (Version 1)
Quarter: 2013Q1

REPORT INFORMATION
  Report Type: Spontaneous
  Country: US (occurrence: None)
  Receive Date: 20130225
  Receipt Date: 20130225
  Transmission Date: 20140127
  Serious: Yes (Hospitalization)
  Sender: FDA-Public Use
  Company Number: 2012-329

PATIENT
  Age: 53 Year
  Sex: Male

DRUGS (1)
  1. PRIALT (ZICONOTIDE) INTRATHECAL INFUSION [Suspect]
     Route: 037
     Dates: start: 2010, end: 20120620

REACTIONS (2)
  - Psychotic disorder [None]
  - Mental status changes postoperative [None]
